FAERS Safety Report 13857355 (Version 4)
Quarter: 2017Q4

REPORT INFORMATION
  Report Type: Report from Study
  Country: US (occurrence: US)
  Receive Date: 20170810
  Receipt Date: 20171024
  Transmission Date: 20180320
  Serious: Yes (Hospitalization)
  Sender: FDA-Public Use
  Company Number: US-VIFOR (INTERNATIONAL) INC.-VIT-2017-08449

PATIENT
  Sex: Female
  Weight: 66.74 kg

DRUGS (17)
  1. BENZONATATE. [Concomitant]
     Active Substance: BENZONATATE
  2. FISH OIL [Concomitant]
     Active Substance: FISH OIL
  3. HYDRALAZINE HYDROCHLORIDE. [Concomitant]
     Active Substance: HYDRALAZINE HYDROCHLORIDE
  4. COLECALCIFEROL [Concomitant]
     Active Substance: CHOLECALCIFEROL
  5. CITROMA [Concomitant]
     Active Substance: MAGNESIUM CITRATE
  6. CYANOCOBALAMIN. [Concomitant]
     Active Substance: CYANOCOBALAMIN
  7. LORATADINE. [Concomitant]
     Active Substance: LORATADINE
  8. MIRALAX [Concomitant]
     Active Substance: POLYETHYLENE GLYCOL 3350
  9. VELTASSA [Suspect]
     Active Substance: PATIROMER
     Indication: HYPERKALAEMIA
     Route: 048
     Dates: start: 20170424
  10. BYSTOLIC [Concomitant]
     Active Substance: NEBIVOLOL HYDROCHLORIDE
  11. CHONDROITIN PLUS GLUCOSAMINE [Concomitant]
  12. MAGNESIUM HYDROXIDE. [Concomitant]
     Active Substance: MAGNESIUM HYDROXIDE
  13. VELTASSA [Suspect]
     Active Substance: PATIROMER
     Route: 048
  14. OMEPRAZOLE. [Concomitant]
     Active Substance: OMEPRAZOLE
  15. FERROUS SULFATE. [Concomitant]
     Active Substance: FERROUS SULFATE
  16. SENNOSIDES. [Concomitant]
     Active Substance: SENNOSIDES
  17. DOCUSATE SODIUM. [Concomitant]
     Active Substance: DOCUSATE SODIUM

REACTIONS (4)
  - Hospitalisation [Unknown]
  - Inappropriate schedule of drug administration [Unknown]
  - Patella fracture [Unknown]
  - Fall [Unknown]

NARRATIVE: CASE EVENT DATE: 2017
